FAERS Safety Report 8263075-8 (Version None)
Quarter: 2012Q2

REPORT INFORMATION
  Report Type: 
  Country: None (occurrence: None)
  Receive Date: 20120405
  Receipt Date: 20120327
  Transmission Date: 20120825
  Serious: Yes (Hospitalization)
  Sender: FDA-Public Use
  Company Number: US-ACTELION-A-US2012-62121

PATIENT

DRUGS (1)
  1. TRACLEER [Suspect]
     Indication: PULMONARY ARTERIAL HYPERTENSION
     Dosage: UNK
     Route: 048
     Dates: start: 20111006

REACTIONS (4)
  - PULMONARY ARTERIAL HYPERTENSION [None]
  - INFECTION [None]
  - MEDICAL DEVICE COMPLICATION [None]
  - SYSTEMIC LUPUS ERYTHEMATOSUS [None]
